FAERS Safety Report 5735928-3 (Version None)
Quarter: 2008Q2

REPORT INFORMATION
  Report Type: 
  Country: None (occurrence: None)
  Receive Date: 20080509
  Receipt Date: 20080429
  Transmission Date: 20081010
  Serious: Yes (Life-Threatening)
  Sender: FDA-Public Use
  Company Number: APP200800345

PATIENT
  Age: 26 Year
  Sex: Female
  Weight: 54 kg

DRUGS (2)
  1. DIPRIVAN [Suspect]
     Indication: STATUS EPILEPTICUS
     Dosage: 8 MG/KG, PER HOUR CONTINUOUS, INTRAVENOUS
     Route: 042
     Dates: start: 20080426, end: 20080429
  2. SEIZURE MEDICATIONS [Concomitant]

REACTIONS (2)
  - INFECTION [None]
  - PROPOFOL INFUSION SYNDROME [None]
